FAERS Safety Report 6569580-4 (Version None)
Quarter: 2010Q1

REPORT INFORMATION
  Report Type: 
  Country: None (occurrence: None)
  Receive Date: 20100203
  Receipt Date: 20100203
  Transmission Date: 20100710
  Serious: Yes (Life-Threatening, Other)
  Sender: FDA-Public Use
  Company Number: None

PATIENT
  Age: 56 Year
  Sex: Female
  Weight: 61.2356 kg

DRUGS (2)
  1. MCNEIL -TYLENOL P.M. (EXTRA STRENGTH) [Suspect]
     Indication: INSOMNIA
     Dosage: 2 TABS 2 @ HS ORAL
     Route: 048
     Dates: start: 20100110, end: 20100117
  2. MCNEIL -TYLENOL P.M. (EXTRA STRENGTH) [Suspect]
     Indication: PAIN IN EXTREMITY
     Dosage: 2 TABS 2 @ HS ORAL
     Route: 048
     Dates: start: 20100110, end: 20100117

REACTIONS (7)
  - DEHYDRATION [None]
  - DIARRHOEA [None]
  - DIZZINESS [None]
  - MALAISE [None]
  - PALLOR [None]
  - PRODUCT QUALITY ISSUE [None]
  - VERTIGO [None]
